FAERS Safety Report 8507064-4 (Version None)
Quarter: 2012Q3

REPORT INFORMATION
  Report Type: 
  Country: None (occurrence: None)
  Receive Date: 20120712
  Receipt Date: 20120703
  Transmission Date: 20120928
  Serious: Yes (Other)
  Sender: FDA-Public Use
  Company Number: US-CELGENEUS-163-21880-12070455

PATIENT
  Sex: Male

DRUGS (6)
  1. FOLIC ACID [Concomitant]
     Route: 065
  2. REVLIMID [Suspect]
     Indication: MULTIPLE MYELOMA
     Dosage: 25 MILLIGRAM
     Route: 048
     Dates: start: 20100701, end: 20120301
  3. REVLIMID [Suspect]
     Dosage: 15 MILLIGRAM
     Route: 048
     Dates: start: 20120701
  4. DECADRON [Concomitant]
     Indication: MULTIPLE MYELOMA
     Route: 065
  5. COUMADIN [Concomitant]
     Indication: BLOOD DISORDER
     Route: 065
  6. ARANESP [Concomitant]
     Indication: BLOOD DISORDER
     Route: 065

REACTIONS (2)
  - COAGULOPATHY [None]
  - HAEMORRHAGE [None]
